FAERS Safety Report 25330222 (Version 1)
Quarter: 2025Q2

REPORT INFORMATION
  Report Type: Report from Study
  Country: US (occurrence: US)
  Receive Date: 20250519
  Receipt Date: 20250519
  Transmission Date: 20250716
  Serious: Yes (Other)
  Sender: ABBVIE
  Company Number: US-ABBVIE-6285066

PATIENT
  Sex: Female

DRUGS (1)
  1. HUMIRA [Suspect]
     Active Substance: ADALIMUMAB
     Indication: Crohn^s disease
     Route: 058
     Dates: start: 20250306, end: 20250415

REACTIONS (3)
  - Intestinal haemorrhage [Recovering/Resolving]
  - Anaemia [Not Recovered/Not Resolved]
  - Crohn^s disease [Recovering/Resolving]
